FAERS Safety Report 18863279 (Version 1)
Quarter: 2021Q1

REPORT INFORMATION
  Report Type: Report from Study
  Country: TH (occurrence: TH)
  Receive Date: 20210208
  Receipt Date: 20210208
  Transmission Date: 20210420
  Serious: Yes (Other)
  Sender: FDA-Public Use
  Company Number: TH-GLAXOSMITHKLINE-THCH2021GSK004897

PATIENT
  Sex: Female

DRUGS (3)
  1. MEFENAMIC ACID. [Suspect]
     Active Substance: MEFENAMIC ACID
     Indication: PRODUCT USED FOR UNKNOWN INDICATION
     Dosage: UNK
  2. INDOMETHACIN. [Suspect]
     Active Substance: INDOMETHACIN
     Indication: PRODUCT USED FOR UNKNOWN INDICATION
     Dosage: UNK
  3. IBUPROFEN. [Suspect]
     Active Substance: IBUPROFEN
     Indication: PRODUCT USED FOR UNKNOWN INDICATION
     Dosage: UNK

REACTIONS (11)
  - Dermatitis allergic [Unknown]
  - Diarrhoea [Unknown]
  - Type I hypersensitivity [Unknown]
  - Nasal obstruction [Unknown]
  - Abdominal pain upper [Unknown]
  - Therapeutic product cross-reactivity [Unknown]
  - Rhinorrhoea [Unknown]
  - Aspirin-exacerbated respiratory disease [Unknown]
  - Angioedema [Unknown]
  - Urticaria [Unknown]
  - Asthma [Unknown]
